FAERS Safety Report 17536532 (Version 2)
Quarter: 2021Q3

REPORT INFORMATION
  Report Type: Report from Study
  Country: US (occurrence: US)
  Receive Date: 20200313
  Receipt Date: 20210909
  Transmission Date: 20211014
  Serious: Yes (Other)
  Sender: FDA-Public Use
  Company Number: US-ACADIA PHARMACEUTICALS INC.-ACA-2020-PIM-000784

PATIENT
  Age: 73 Year
  Sex: Female

DRUGS (3)
  1. NUPLAZID [Suspect]
     Active Substance: PIMAVANSERIN TARTRATE
     Indication: PARKINSON^S DISEASE PSYCHOSIS
     Dosage: 34 MILLIGRAM, QD
     Route: 048
     Dates: start: 20190418
  2. NUPLAZID [Suspect]
     Active Substance: PIMAVANSERIN TARTRATE
     Indication: DELUSION
  3. NUPLAZID [Suspect]
     Active Substance: PIMAVANSERIN TARTRATE
     Indication: HALLUCINATION
     Dosage: 34 MILLIGRAM, QD
     Route: 048

REACTIONS (11)
  - Product dose omission issue [Unknown]
  - Delusion [Unknown]
  - Drug ineffective [Unknown]
  - Eye disorder [Not Recovered/Not Resolved]
  - Confusional state [Unknown]
  - Device physical property issue [Not Recovered/Not Resolved]
  - Condition aggravated [Not Recovered/Not Resolved]
  - Fall [Unknown]
  - Facial bones fracture [Not Recovered/Not Resolved]
  - Condition aggravated [Unknown]
  - Hallucination, visual [Unknown]

NARRATIVE: CASE EVENT DATE: 202002
